FAERS Safety Report 5899084-3 (Version None)
Quarter: 2008Q3

REPORT INFORMATION
  Report Type: 
  Country: None (occurrence: None)
  Receive Date: 20080925
  Receipt Date: 20080923
  Transmission Date: 20090109
  Serious: Yes (Other)
  Sender: FDA-Public Use
  Company Number: US-ASTRAZENECA-2008UW06943

PATIENT
  Age: 43 Year
  Sex: Male
  Weight: 109.8 kg

DRUGS (3)
  1. SEROQUEL [Suspect]
     Indication: INSOMNIA
     Route: 048
     Dates: start: 20030723, end: 20070401
  2. THORAZINE [Concomitant]
  3. PAXIL [Concomitant]
     Dates: start: 20070101

REACTIONS (6)
  - CATHETERISATION CARDIAC [None]
  - CHRONIC OBSTRUCTIVE PULMONARY DISEASE [None]
  - DIABETES MELLITUS [None]
  - HEPATITIS B [None]
  - HEPATITIS C [None]
  - ILL-DEFINED DISORDER [None]
